FAERS Safety Report 17099431 (Version 1)
Quarter: 2019Q4

REPORT INFORMATION
  Report Type: Spontaneous
  Country: US (occurrence: US)
  Receive Date: 20191201
  Receipt Date: 20191201
  Transmission Date: 20200122
  Serious: No
  Sender: FDA-Public Use
  Company Number: None

PATIENT
  Age: 26 Year
  Sex: Male
  Weight: 58.5 kg

DRUGS (1)
  1. RANITIDINE 150MG TABLRTS [Suspect]
     Active Substance: RANITIDINE
     Indication: DYSPEPSIA

REACTIONS (3)
  - Recalled product [None]
  - Nausea [None]
  - Dizziness [None]

NARRATIVE: CASE EVENT DATE: 20190212
